FAERS Safety Report 9569139 (Version 1)
Quarter: 2013Q3

REPORT INFORMATION
  Report Type: Spontaneous
  Country: US (occurrence: US)
  Receive Date: 20130930
  Receipt Date: 20130930
  Transmission Date: 20140515
  Serious: No
  Sender: FDA-Public Use
  Company Number: US-AMGEN-USASP2013060336

PATIENT
  Age: 61 Year
  Sex: Male
  Weight: 79.37 kg

DRUGS (9)
  1. ENBREL [Suspect]
     Indication: RHEUMATOID ARTHRITIS
     Dosage: 50 MG, QWK
     Route: 058
  2. PROTONIX [Concomitant]
     Dosage: 40 MG, UNK
  3. XANAX [Concomitant]
     Dosage: 0.5 MG, UNK
  4. PRAVASTATIN [Concomitant]
     Dosage: 40 MG, UNK
  5. AMITRIPTYLIN [Concomitant]
     Dosage: 50 MG, UNK
  6. FENTANYL [Concomitant]
     Dosage: 12 MCG/HR
  7. CALCIUM [Concomitant]
     Dosage: 500 UNK, UNK
  8. VITAMIN C                          /00008001/ [Concomitant]
     Dosage: 500 MG, UNK
  9. MELATONIN [Concomitant]
     Dosage: 1 MG, UNK

REACTIONS (1)
  - Infection [Unknown]
